FAERS Safety Report 4338755-7 (Version None)
Quarter: 2004Q2

REPORT INFORMATION
  Report Type: 
  Country: None (occurrence: None)
  Receive Date: 20040409
  Receipt Date: 20040405
  Transmission Date: 20050107
  Serious: Yes (Other)
  Sender: FDA-Public Use
  Company Number: 2003174119US

PATIENT
  Age: 43 Year
  Sex: Female
  Weight: 95.2 kg

DRUGS (4)
  1. BEXTRA [Suspect]
     Indication: ARTHRALGIA
     Dosage: 40; 20 MG, QD, ORAL
     Route: 048
     Dates: start: 20030808, end: 20030810
  2. BEXTRA [Suspect]
     Indication: ARTHRALGIA
     Dosage: 40; 20 MG, QD, ORAL
     Route: 048
     Dates: start: 20030810, end: 20030811
  3. ZYRTEC [Concomitant]
  4. HYDROCORTISONE CREAM [Concomitant]

REACTIONS (2)
  - ARTHRITIS [None]
  - ERYTHEMA MULTIFORME [None]
